FAERS Safety Report 6393554-X (Version None)
Quarter: 2009Q4

REPORT INFORMATION
  Report Type: 
  Country: None (occurrence: None)
  Receive Date: 20091008
  Receipt Date: 20091006
  Transmission Date: 20100525
  Serious: Yes (Other)
  Sender: FDA-Public Use
  Company Number: B0596799A

PATIENT
  Age: 10 Week
  Sex: Male

DRUGS (1)
  1. ZANTAC [Suspect]
     Indication: DRUG USE FOR UNKNOWN INDICATION
     Route: 065

REACTIONS (5)
  - ANGIOPATHY [None]
  - BLEEDING TIME PROLONGED [None]
  - CONTUSION [None]
  - PLATELET COUNT ABNORMAL [None]
  - RETINAL HAEMORRHAGE [None]
